FAERS Safety Report 8489748-X (Version None)
Quarter: 2012Q3

REPORT INFORMATION
  Report Type: 
  Country: None (occurrence: None)
  Receive Date: 20120705
  Receipt Date: 20120628
  Transmission Date: 20120928
  Serious: Yes (Other)
  Sender: FDA-Public Use
  Company Number: GB-GLAXOSMITHKLINE-B0812352A

PATIENT
  Sex: Female

DRUGS (4)
  1. PROPAFENONE HYDROCHLORIDE [Suspect]
     Indication: ATRIAL FIBRILLATION
     Dosage: 150MG FOUR TIMES PER DAY
     Route: 048
  2. LEVOTHYROXINE SODIUM [Concomitant]
     Dosage: 125MCG PER DAY
     Route: 048
  3. WARFARIN SODIUM [Concomitant]
     Route: 048
  4. BISOPROLOL FUMARATE [Concomitant]
     Dosage: 125MG PER DAY
     Route: 048

REACTIONS (1)
  - OSTEOARTHRITIS [None]
